FAERS Safety Report 4977615-5 (Version None)
Quarter: 2006Q2

REPORT INFORMATION
  Report Type: 
  Country: None (occurrence: None)
  Receive Date: 20060414
  Receipt Date: 20060407
  Transmission Date: 20061013
  Serious: Yes (Congenital Anomaly)
  Sender: FDA-Public Use
  Company Number: 13847

PATIENT
  Age: 3 Month
  Sex: Female

DRUGS (1)
  1. METHOTREXATE [Suspect]
     Indication: ABORTION INDUCED
     Dosage: 2.5 MG DAILY TL
     Route: 064

REACTIONS (10)
  - BRAIN MALFORMATION [None]
  - CONGENITAL ANOMALY [None]
  - DRUG EXPOSURE DURING PREGNANCY [None]
  - DRUG TOXICITY [None]
  - FOETAL GROWTH RETARDATION [None]
  - GROWTH OF EYELASHES [None]
  - HOLOPROSENCEPHALY [None]
  - HYPERTRICHOSIS [None]
  - INDUCED ABORTION FAILED [None]
  - MALAISE [None]
